FAERS Safety Report 23913314 (Version 3)
Quarter: 2024Q2

REPORT INFORMATION
  Report Type: Spontaneous
  Country: JP (occurrence: JP)
  Receive Date: 20240529
  Receipt Date: 20240611
  Transmission Date: 20240716
  Serious: Yes (Death, Other)
  Sender: FDA-Public Use
  Company Number: JP-GENMAB-2024-01733

PATIENT
  Age: 65 Year
  Sex: Male

DRUGS (8)
  1. EPKINLY [Suspect]
     Active Substance: EPCORITAMAB-BYSP
     Indication: Diffuse large B-cell lymphoma
     Dosage: 0.16 MILLIGRAM, SINGLE
     Route: 058
     Dates: start: 20240514, end: 20240514
  2. VINCRISTINE SULFATE [Suspect]
     Active Substance: VINCRISTINE SULFATE
     Indication: Diffuse large B-cell lymphoma
     Dosage: 0.5 MILLIGRAM/SQ. METER, CONCOMITANT ADMINISTRATION OF ETOPOSIDE FOR 4 DAYS
     Dates: start: 20240508, end: 202405
  3. ETOPOSIDE [Suspect]
     Active Substance: ETOPOSIDE
     Indication: Diffuse large B-cell lymphoma
     Dosage: 50 MILLIGRAM/SQ. METER, CONCOMITANT ADMINISTRATION OF VINCRISTINE FOR 4 DAYS
     Dates: start: 20240508, end: 202405
  4. PREDNISOLONE [Concomitant]
     Active Substance: PREDNISOLONE
     Dosage: 100 MILLIGRAM
     Dates: start: 20240514, end: 20240517
  5. DIPHENHYDRAMINE [Concomitant]
     Active Substance: DIPHENHYDRAMINE
     Dosage: 50 MILLIGRAM
     Dates: start: 20240514, end: 20240517
  6. ACETAMINOPHEN [Concomitant]
     Active Substance: ACETAMINOPHEN
     Dosage: 650 MILLIGRAM
     Dates: start: 20240514, end: 20240517
  7. GANCICLOVIR [Concomitant]
     Active Substance: GANCICLOVIR
     Dosage: 200 MILLIGRAM, BID, ADMINISTERED FOR APPROXIMATELY THREE WEEKS
     Route: 041
     Dates: start: 2024, end: 202405
  8. FLUCONAZOLE [Concomitant]
     Active Substance: FLUCONAZOLE
     Dosage: 200 MILLIGRAM, ONE DAY, ADMINISTERED FOR APPROXIMATELY THREE WEEKS
     Route: 048
     Dates: start: 2024, end: 202405

REACTIONS (4)
  - Renal impairment [Unknown]
  - Pneumonia [Fatal]
  - Diffuse large B-cell lymphoma [Fatal]
  - White blood cell count decreased [Not Recovered/Not Resolved]

NARRATIVE: CASE EVENT DATE: 20240501
